FAERS Safety Report 6601291-9 (Version None)
Quarter: 2010Q1

REPORT INFORMATION
  Report Type: 
  Country: None (occurrence: None)
  Receive Date: 20100224
  Receipt Date: 20100224
  Transmission Date: 20100710
  Serious: Yes (Hospitalization)
  Sender: FDA-Public Use
  Company Number: None

PATIENT
  Sex: Male
  Weight: 102.72 kg

DRUGS (1)
  1. TEMOZOLOMIDE [Suspect]
     Dosage: 660 MG
     Dates: start: 20100211

REACTIONS (1)
  - GRAND MAL CONVULSION [None]
